FAERS Safety Report 21438929 (Version 1)
Quarter: 2022Q4

REPORT INFORMATION
  Report Type: Report from Study
  Country: US (occurrence: US)
  Receive Date: 20221011
  Receipt Date: 20221011
  Transmission Date: 20230113
  Serious: Yes (Other)
  Sender: FDA-Public Use
  Company Number: US-ABBVIE-4149199

PATIENT
  Sex: Female

DRUGS (3)
  1. HUMIRA [Suspect]
     Active Substance: ADALIMUMAB
     Indication: Rheumatoid arthritis
     Dosage: FORM STRENGTH-40MG
     Route: 058
     Dates: start: 2007
  2. Pfizer/BioNTech covid-19 vacicne [Concomitant]
     Indication: COVID-19 immunisation
     Dosage: FREQUENCY-1-1-ONCE
     Route: 030
  3. MODERNA COVID-19 VACCINE [Concomitant]
     Active Substance: ELASOMERAN
     Indication: COVID-19 immunisation
     Dosage: FREQUENCY-1-1-ONCE?BOOSTER DOSE
     Route: 030

REACTIONS (4)
  - Suicidal ideation [Not Recovered/Not Resolved]
  - Osteoarthritis [Unknown]
  - Depressed mood [Not Recovered/Not Resolved]
  - Vein disorder [Unknown]
